FAERS Safety Report 25664200 (Version 1)
Quarter: 2025Q3

REPORT INFORMATION
  Report Type: Report from Study
  Country: US (occurrence: US)
  Receive Date: 20250811
  Receipt Date: 20250811
  Transmission Date: 20251020
  Serious: No
  Sender: SUNOVION
  Company Number: US-SMPA-2025SPA009982

PATIENT
  Age: 76 Year
  Sex: Male

DRUGS (14)
  1. ORGOVYX [Suspect]
     Active Substance: RELUGOLIX
     Indication: Prostate cancer
     Route: 048
  2. ORGOVYX [Suspect]
     Active Substance: RELUGOLIX
     Route: 048
  3. ATORVASTATIN [Concomitant]
     Active Substance: ATORVASTATIN
  4. CARVEDILOL [Concomitant]
     Active Substance: CARVEDILOL
  5. CYCLOBENZAPRINE [Concomitant]
     Active Substance: CYCLOBENZAPRINE
  6. FUROSEMIDE [Concomitant]
     Active Substance: FUROSEMIDE
  7. HYDROCHLOROTHIAZIDE [Concomitant]
     Active Substance: HYDROCHLOROTHIAZIDE
  8. LYRICA [Concomitant]
     Active Substance: PREGABALIN
  9. METFORMIN [Concomitant]
     Active Substance: METFORMIN HYDROCHLORIDE
  10. OXYBUTYNIN [Concomitant]
     Active Substance: OXYBUTYNIN
  11. PANTOPRAZOLE [Concomitant]
     Active Substance: PANTOPRAZOLE
  12. PREDNISONE [Concomitant]
     Active Substance: PREDNISONE
  13. OMEPRAZOLE [Concomitant]
     Active Substance: OMEPRAZOLE
  14. ASPIRIN [Concomitant]
     Active Substance: ASPIRIN

REACTIONS (1)
  - Hot flush [Unknown]
